FAERS Safety Report 7208557-2 (Version None)
Quarter: 2010Q4

REPORT INFORMATION
  Report Type: 
  Country: None (occurrence: None)
  Receive Date: 20101230
  Receipt Date: 20101230
  Transmission Date: 20110411
  Serious: Yes (Hospitalization)
  Sender: FDA-Public Use
  Company Number: None

PATIENT
  Age: 38 Year
  Sex: Female
  Weight: 58.0604 kg

DRUGS (2)
  1. KEPPRA XR [Suspect]
  2. VIMPAT [Suspect]

REACTIONS (4)
  - ATRIAL FIBRILLATION [None]
  - CONVULSION [None]
  - NAUSEA [None]
  - VOMITING [None]
